FAERS Safety Report 8349514-2 (Version None)
Quarter: 2012Q2

REPORT INFORMATION
  Report Type: 
  Country: None (occurrence: None)
  Receive Date: 20120510
  Receipt Date: 20120501
  Transmission Date: 20120825
  Serious: Yes (Other)
  Sender: FDA-Public Use
  Company Number: US-ASTRAZENECA-2010SE19214

PATIENT
  Age: 68 Year
  Sex: Male
  Weight: 57.6 kg

DRUGS (5)
  1. SEROQUEL [Suspect]
     Indication: DEPRESSION
     Route: 048
  2. SEROQUEL [Suspect]
     Route: 048
  3. PROZAC [Concomitant]
  4. SEROQUEL [Suspect]
     Route: 048
  5. TERAZOSIN HCL [Concomitant]

REACTIONS (6)
  - DEPRESSION [None]
  - VERTEBRAL ARTERY STENOSIS [None]
  - DRUG SCREEN POSITIVE [None]
  - SOMNOLENCE [None]
  - INTENTIONAL DRUG MISUSE [None]
  - DRUG INEFFECTIVE [None]
